FAERS Safety Report 10526610 (Version 2)
Quarter: 2015Q1

REPORT INFORMATION
  Report Type: Spontaneous
  Country: US (occurrence: US)
  Receive Date: 20141020
  Receipt Date: 20150217
  Transmission Date: 20150720
  Serious: No
  Sender: FDA-Public Use
  Company Number: US-009507513-1410USA004280

PATIENT
  Age: 20 Year
  Sex: Female
  Weight: 83.45 kg

DRUGS (2)
  1. NEXPLANON [Suspect]
     Active Substance: ETONOGESTREL
     Dosage: LEFT ARM, UNK
     Route: 059
     Dates: start: 20141003
  2. NEXPLANON [Suspect]
     Active Substance: ETONOGESTREL
     Dosage: LEFT ARM, UNK
     Route: 059
     Dates: start: 20141003, end: 20141003

REACTIONS (3)
  - Device deployment issue [Recovered/Resolved]
  - Device expulsion [Recovered/Resolved]
  - No adverse event [Unknown]

NARRATIVE: CASE EVENT DATE: 20141003
